FAERS Safety Report 9744450 (Version 1)
Quarter: 2013Q4

REPORT INFORMATION
  Report Type: Spontaneous
  Country: US (occurrence: US)
  Receive Date: 20131210
  Receipt Date: 20131210
  Transmission Date: 20140711
  Serious: Yes (Other)
  Sender: FDA-Public Use
  Company Number: CHPA2013US017769

PATIENT
  Age: 53 Year
  Sex: Female

DRUGS (4)
  1. EXCEDRIN EXTRA STRENGTH [Suspect]
     Indication: HEADACHE
     Dosage: 1 DF, 1-2 TIMES A MONTH
     Route: 048
  2. EXCEDRIN EXTRA STRENGTH [Suspect]
     Indication: SOMNOLENCE
     Dosage: 2 DF, ONCE/SINGLE
     Route: 048
     Dates: start: 20131126, end: 20131126
  3. EXCEDRIN EXTRA STRENGTH [Suspect]
     Indication: OFF LABEL USE
  4. GABAPENTIN [Suspect]
     Indication: NERVE INJURY
     Dosage: 3 DF, UNK
     Dates: start: 20131107

REACTIONS (7)
  - Sleep apnoea syndrome [Not Recovered/Not Resolved]
  - Respiratory disorder [Not Recovered/Not Resolved]
  - Insomnia [Not Recovered/Not Resolved]
  - Nerve injury [Recovering/Resolving]
  - Sinus headache [Not Recovered/Not Resolved]
  - Somnolence [Recovering/Resolving]
  - Underdose [Unknown]
